FAERS Safety Report 14381404 (Version 1)
Quarter: 2018Q1

REPORT INFORMATION
  Report Type: Spontaneous
  Country: US (occurrence: US)
  Receive Date: 20180112
  Receipt Date: 20180112
  Transmission Date: 20180509
  Serious: No
  Sender: FDA-Public Use
  Company Number: US-BAYER-2018-006692

PATIENT
  Age: 14 Month
  Sex: Female
  Weight: 9 kg

DRUGS (2)
  1. MIRALAX [Suspect]
     Active Substance: POLYETHYLENE GLYCOL 3350
     Indication: GASTROINTESTINAL DISORDER
     Dosage: 2 BABY TEASPOONS, QD
     Route: 048
     Dates: start: 201712
  2. MIRALAX [Suspect]
     Active Substance: POLYETHYLENE GLYCOL 3350
     Indication: CONSTIPATION
     Dosage: 1 DF, QD
     Route: 048
     Dates: start: 20180103

REACTIONS (2)
  - Drug ineffective [None]
  - Product use issue [Unknown]

NARRATIVE: CASE EVENT DATE: 201712
